FAERS Safety Report 9351403 (Version 1)
Quarter: 2013Q2

REPORT INFORMATION
  Report Type: Spontaneous
  Country: CA (occurrence: CA)
  Receive Date: 20130617
  Receipt Date: 20130617
  Transmission Date: 20140414
  Serious: Yes (Other)
  Sender: FDA-Public Use
  Company Number: CA-009507513-1306CAN005932

PATIENT
  Sex: Male

DRUGS (2)
  1. VICTRELIS TRIPLE [Suspect]
     Indication: HEPATITIS C
     Dosage: 120 MICROGRAM, QW
     Route: 058
     Dates: start: 201305, end: 20130609
  2. VICTRELIS TRIPLE [Suspect]
     Dosage: 2400 MG, QD
     Route: 048
     Dates: start: 201305, end: 20130609

REACTIONS (5)
  - Myocardial infarction [Recovered/Resolved]
  - Weight decreased [Recovered/Resolved]
  - Depressed mood [Recovered/Resolved]
  - Bipolar I disorder [Recovered/Resolved]
  - Tachycardia [Recovered/Resolved]
